FAERS Safety Report 9602908 (Version 1)
Quarter: 2013Q4

REPORT INFORMATION
  Report Type: Spontaneous
  Country: US (occurrence: None)
  Receive Date: 20131003
  Receipt Date: 20131003
  Transmission Date: 20140711
  Serious: Yes (Other)
  Sender: FDA-Public Use
  Company Number: ACO_38088_2013

PATIENT
  Age: 54 Year
  Sex: Female
  Weight: 63.5 kg

DRUGS (9)
  1. AMPYRA [Suspect]
     Indication: GAIT DISTURBANCE
     Route: 048
  2. TECFIDERA [Suspect]
     Route: 048
     Dates: end: 2013
  3. LEXAPRO (ESCITALOPRAM OXALATE) [Concomitant]
  4. PREVACID (LANSOPRAZOLE) [Concomitant]
  5. NADOLOL (NADOLOL) [Concomitant]
  6. TYLENOL (PARACETAMOL) [Concomitant]
  7. FUROSEMIDE (FUROSEMIDE) [Concomitant]
  8. LANSOPRAZOLE (LANSOPRAZOLE) [Concomitant]
  9. IBUPROFEN (IBUPROFEN) [Concomitant]

REACTIONS (4)
  - Cholecystectomy [None]
  - Diarrhoea [None]
  - Weight decreased [None]
  - Nausea [None]
